FAERS Safety Report 11422177 (Version 1)
Quarter: 2015Q3

REPORT INFORMATION
  Report Type: Spontaneous
  Country: JP (occurrence: None)
  Receive Date: 20150825
  Receipt Date: 20150825
  Transmission Date: 20151125
  Serious: Yes (Other)
  Sender: FDA-Public Use
  Company Number: 2015FE02789

PATIENT
  Age: 70 Year
  Sex: Male

DRUGS (2)
  1. GONAX (DEGARELIX) POWDER AND SOLVENT FOR SOLUTION FOR INJECTION [Suspect]
     Active Substance: DEGARELIX
     Indication: PRODUCT USED FOR UNKNOWN INDICATION
     Dosage: SINGLE
     Route: 058
     Dates: start: 20150702
  2. BAYASPIRIN (ACETYLSALICYLIC ACID) [Concomitant]

REACTIONS (1)
  - Cerebral infarction [None]
